FAERS Safety Report 5697963-3 (Version None)
Quarter: 2008Q2

REPORT INFORMATION
  Report Type: 
  Country: None (occurrence: None)
  Receive Date: 20080404
  Receipt Date: 20080404
  Transmission Date: 20081010
  Serious: Yes (Life-Threatening, Hospitalization)
  Sender: FDA-Public Use
  Company Number: None

PATIENT
  Age: 37 Year
  Sex: Male

DRUGS (3)
  1. FLUCONAZOLE [Suspect]
     Indication: ORAL CANDIDIASIS
     Dosage: 100MG QD PO
     Route: 048
  2. CLINDAMYCIN [Concomitant]
  3. PRIMAQUINE [Concomitant]

REACTIONS (4)
  - DYSPHAGIA [None]
  - EPISTAXIS [None]
  - RASH [None]
  - TOXIC EPIDERMAL NECROLYSIS [None]
